FAERS Safety Report 8474971-0 (Version None)
Quarter: 2012Q2

REPORT INFORMATION
  Report Type: 
  Country: None (occurrence: None)
  Receive Date: 20120628
  Receipt Date: 20120626
  Transmission Date: 20120825
  Serious: Yes (Life-Threatening, Hospitalization, Other)
  Sender: FDA-Public Use
  Company Number: PHHY2012BR055185

PATIENT
  Sex: Male
  Weight: 67 kg

DRUGS (3)
  1. DIOVAN HCT [Suspect]
     Indication: HYPERTENSION
     Dosage: 1 DF (80/12.5 MG), QD
     Route: 048
  2. DIOVAN HCT [Suspect]
     Dosage: 0.5 DF (80/12.5 MG), BID
     Route: 048
  3. SOMALGIN [Concomitant]
     Indication: ANTIPLATELET THERAPY
     Dosage: 1 DF, DAILY
     Route: 048

REACTIONS (3)
  - WRONG TECHNIQUE IN DRUG USAGE PROCESS [None]
  - COMA [None]
  - CEREBROVASCULAR ACCIDENT [None]
